FAERS Safety Report 6202597-8 (Version None)
Quarter: 2009Q2

REPORT INFORMATION
  Report Type: 
  Country: None (occurrence: None)
  Receive Date: 20090521
  Receipt Date: 20090521
  Transmission Date: 20091009
  Serious: Yes (Death)
  Sender: FDA-Public Use
  Company Number: None

PATIENT
  Sex: Female
  Weight: 54 kg

DRUGS (1)
  1. ARIMIDEX [Suspect]
     Dosage: 1 MG
     Dates: end: 20080229

REACTIONS (1)
  - DEATH [None]
